FAERS Safety Report 12687745 (Version 1)
Quarter: 2016Q3

REPORT INFORMATION
  Report Type: Spontaneous
  Country: US (occurrence: US)
  Receive Date: 20160825
  Receipt Date: 20160825
  Transmission Date: 20161109
  Serious: No
  Sender: FDA-Public Use
  Company Number: US-PFIZER INC-2016312291

PATIENT
  Age: 69 Year
  Sex: Female

DRUGS (8)
  1. ZEBETA [Concomitant]
     Active Substance: BISOPROLOL FUMARATE
     Indication: VENTRICULAR HYPERTROPHY
  2. CALAN SR [Suspect]
     Active Substance: VERAPAMIL HYDROCHLORIDE
     Indication: VENTRICULAR HYPERTROPHY
     Dosage: 240 MG, 2X/DAY
     Dates: start: 1996
  3. ZEBETA [Concomitant]
     Active Substance: BISOPROLOL FUMARATE
     Indication: CARDIOMYOPATHY
     Dosage: 10 MG, 2X/DAY
     Dates: start: 1996, end: 2013
  4. BYSTOLIC [Concomitant]
     Active Substance: NEBIVOLOL HYDROCHLORIDE
     Indication: CARDIOMYOPATHY
     Dosage: 10 MG, 2X/DAY
     Dates: start: 2013
  5. CALAN SR [Suspect]
     Active Substance: VERAPAMIL HYDROCHLORIDE
     Indication: CARDIOMYOPATHY
     Dosage: 120 MG, UNK
     Dates: start: 1996
  6. BYSTOLIC [Concomitant]
     Active Substance: NEBIVOLOL HYDROCHLORIDE
     Indication: VENTRICULAR HYPERTROPHY
  7. ALDOMET [Concomitant]
     Active Substance: METHYLDOPA
     Indication: CARDIOMYOPATHY
     Dosage: 250 MG, 2X/DAY
     Dates: start: 1996
  8. ALDOMET [Concomitant]
     Active Substance: METHYLDOPA
     Indication: VENTRICULAR HYPERTROPHY

REACTIONS (1)
  - Product use issue [Unknown]
